FAERS Safety Report 25184181 (Version 1)
Quarter: 2025Q2

REPORT INFORMATION
  Report Type: Spontaneous
  Country: JP (occurrence: JP)
  Receive Date: 20250410
  Receipt Date: 20250410
  Transmission Date: 20250717
  Serious: Yes (Life-Threatening)
  Sender: MERCK SHARP AND DOHME
  Company Number: JP-009507513-2254946

PATIENT
  Sex: Female

DRUGS (1)
  1. KEYTRUDA [Suspect]
     Active Substance: PEMBROLIZUMAB
     Indication: Product used for unknown indication
     Route: 041

REACTIONS (2)
  - Immune-mediated enterocolitis [Recovering/Resolving]
  - Blood pressure decreased [Unknown]
